FAERS Safety Report 18688011 (Version 1)
Quarter: 2020Q4

REPORT INFORMATION
  Report Type: Spontaneous
  Country: US (occurrence: US)
  Receive Date: 20201231
  Receipt Date: 20201231
  Transmission Date: 20210114
  Serious: Yes (Other)
  Sender: FDA-Public Use
  Company Number: US-009507513-2012USA011959

PATIENT
  Sex: Male

DRUGS (2)
  1. ALENDRONATE SODIUM. [Suspect]
     Active Substance: ALENDRONATE SODIUM
     Indication: OSTEOPOROSIS
     Dosage: DOSAGE DETAILS: NOT REPORTED, ^AS PRESCRIBED AND IN A REASONABLY FORESEEABLE MANNER^
     Route: 048
     Dates: start: 199607, end: 2011
  2. FOSAMAX [Suspect]
     Active Substance: ALENDRONATE SODIUM
     Indication: OSTEOPOROSIS
     Dosage: DOSAGE DETAILS: NOT REPORTED, ^AS PRESCRIBED AND IN A REASONABLY FORESEEABLE MANNER^
     Route: 048
     Dates: start: 199607, end: 2011

REACTIONS (2)
  - Incorrect product administration duration [Unknown]
  - Femur fracture [Unknown]

NARRATIVE: CASE EVENT DATE: 20110702
